FAERS Safety Report 5079207-9 (Version None)
Quarter: 2006Q3

REPORT INFORMATION
  Report Type: 
  Country: None (occurrence: None)
  Receive Date: 20060720
  Receipt Date: 20050627
  Transmission Date: 20061208
  Serious: Yes (Hospitalization, Other)
  Sender: FDA-Public Use
  Company Number: 2005085746

PATIENT
  Age: 49 Year
  Sex: Female
  Weight: 72.5755 kg

DRUGS (4)
  1. CELEBREX [Suspect]
     Indication: ARTHRALGIA
     Dosage: (300 MG, PRN), ORAL
     Route: 048
     Dates: start: 20020101, end: 20030101
  2. CELEBREX [Suspect]
     Indication: PAIN
     Dosage: (300 MG, PRN), ORAL
     Route: 048
     Dates: start: 20020101, end: 20030101
  3. VIOXX [Suspect]
     Indication: PAIN
     Dosage: ORAL
     Route: 048
     Dates: start: 20040101, end: 20040101
  4. ANTIHYPERTENSIVES [Suspect]
     Indication: HYPERTENSION

REACTIONS (27)
  - ABDOMINAL PAIN UPPER [None]
  - ANAEMIA [None]
  - ASTHMA [None]
  - BRONCHITIS [None]
  - CARDIAC DISORDER [None]
  - CONFUSIONAL STATE [None]
  - DIZZINESS [None]
  - DRUG INEFFECTIVE [None]
  - DYSPEPSIA [None]
  - DYSPNOEA [None]
  - GASTRIC HAEMORRHAGE [None]
  - GASTRIC INFECTION [None]
  - GASTRIC ULCER [None]
  - HAEMORRHAGE [None]
  - HYPERCHLORHYDRIA [None]
  - HYPERTENSION [None]
  - HYPOAESTHESIA [None]
  - INSOMNIA [None]
  - MALAISE [None]
  - NASAL DISORDER [None]
  - OEDEMA PERIPHERAL [None]
  - PAIN IN EXTREMITY [None]
  - PELVIC INFLAMMATORY DISEASE [None]
  - PULMONARY EMBOLISM [None]
  - PYREXIA [None]
  - UTERINE HAEMORRHAGE [None]
  - VIRAL INFECTION [None]
